FAERS Safety Report 5418966-X (Version None)
Quarter: 2007Q3

REPORT INFORMATION
  Report Type: 
  Country: None (occurrence: None)
  Receive Date: 20070817
  Receipt Date: 20070806
  Transmission Date: 20080115
  Serious: Yes (Other)
  Sender: FDA-Public Use
  Company Number: US-PFIZER INC-2007066117

PATIENT
  Sex: Female
  Weight: 65.909 kg

DRUGS (14)
  1. LYRICA [Suspect]
     Indication: PAIN
     Dates: start: 20070701, end: 20070701
  2. PLAVIX [Concomitant]
  3. AMARYL [Concomitant]
  4. ESTROGENS [Concomitant]
  5. LIPITOR [Concomitant]
  6. POTASSIUM CHLORIDE [Concomitant]
  7. NORVASC [Concomitant]
  8. FUROSEMIDE [Concomitant]
  9. TRANDOLAPRIL [Concomitant]
  10. ASPIRIN [Concomitant]
  11. INSULIN [Concomitant]
     Indication: DIABETES MELLITUS
  12. ALEVE [Concomitant]
     Indication: PAIN
  13. TYLENOL [Concomitant]
     Indication: PAIN
  14. DRUG USED IN DIABETES [Concomitant]

REACTIONS (2)
  - ABASIA [None]
  - VISION BLURRED [None]
